FAERS Safety Report 8473739-9 (Version None)
Quarter: 2012Q2

REPORT INFORMATION
  Report Type: 
  Country: None (occurrence: None)
  Receive Date: 20120628
  Receipt Date: 20111006
  Transmission Date: 20120825
  Serious: Yes (Death)
  Sender: FDA-Public Use
  Company Number: US-MYLANLABS-2011S1020998

PATIENT
  Age: 63 Year
  Sex: Male

DRUGS (2)
  1. CLOZAPINE [Suspect]
     Route: 048
     Dates: end: 20110101
  2. DEPAKOTE [Concomitant]

REACTIONS (3)
  - CARDIOPULMONARY FAILURE [None]
  - INTESTINAL OBSTRUCTION [None]
  - PNEUMONIA ASPIRATION [None]
